FAERS Safety Report 4391754-1 (Version None)
Quarter: 2004Q3

REPORT INFORMATION
  Report Type: 
  Country: None (occurrence: None)
  Receive Date: 20040707
  Receipt Date: 20040623
  Transmission Date: 20050211
  Serious: Yes (Hospitalization)
  Sender: FDA-Public Use
  Company Number: AU-MERCK-0406AUS00079

PATIENT
  Age: 47 Year
  Sex: Male

DRUGS (7)
  1. STROMECTOL [Suspect]
     Indication: ACARODERMATITIS
     Route: 048
     Dates: start: 19960101
  2. STROMECTOL [Suspect]
     Route: 048
     Dates: start: 20000801, end: 20000101
  3. STROMECTOL [Suspect]
     Route: 048
     Dates: start: 20000101
  4. LACTIC ACID [Concomitant]
     Indication: ACARODERMATITIS
     Route: 061
     Dates: start: 20000801, end: 20000101
  5. PERMETHRIN [Concomitant]
     Indication: ACARODERMATITIS
     Route: 061
     Dates: start: 20000801, end: 20000101
  6. SALICYLIC ACID [Concomitant]
     Indication: ACARODERMATITIS
     Route: 061
     Dates: start: 20000801, end: 20000101
  7. UREA [Concomitant]
     Indication: ACARODERMATITIS
     Route: 061
     Dates: start: 20000801, end: 20000101

REACTIONS (2)
  - DRUG RESISTANCE [None]
  - SEPSIS [None]
